FAERS Safety Report 7546339-2 (Version None)
Quarter: 2011Q2

REPORT INFORMATION
  Report Type: 
  Country: None (occurrence: None)
  Receive Date: 20110614
  Receipt Date: 20080122
  Transmission Date: 20111010
  Serious: Yes (Hospitalization, Other)
  Sender: FDA-Public Use
  Company Number: PHEH2007US16066

PATIENT
  Sex: Male
  Weight: 40.362 kg

DRUGS (1)
  1. EXJADE [Suspect]
     Dosage: 1750 MG, QD
     Dates: start: 20061116

REACTIONS (2)
  - LYMPHATIC DISORDER [None]
  - CEREBROVASCULAR ACCIDENT [None]
